FAERS Safety Report 24660497 (Version 1)
Quarter: 2024Q4

REPORT INFORMATION
  Report Type: Spontaneous
  Country: US (occurrence: US)
  Receive Date: 20241125
  Receipt Date: 20241125
  Transmission Date: 20250115
  Serious: Yes (Other)
  Sender: AMGEN
  Company Number: US-AMGEN-USASP2024227632

PATIENT
  Age: 71 Year
  Sex: Male

DRUGS (6)
  1. PREDNISONE [Suspect]
     Active Substance: PREDNISONE
     Indication: Glomerulonephritis minimal lesion
     Dosage: 1 MILLIGRAM, QD (LOW-DOSE)
     Route: 065
     Dates: end: 202102
  2. PREDNISONE [Suspect]
     Active Substance: PREDNISONE
     Dosage: UNK, HIGH DOSE
     Route: 065
     Dates: start: 202104
  3. TACROLIMUS [Concomitant]
     Active Substance: TACROLIMUS
     Indication: Glomerulonephritis minimal lesion
     Dosage: UNK
  4. TACROLIMUS [Concomitant]
     Active Substance: TACROLIMUS
     Dosage: UNK, TAPER OFF
     Dates: end: 202012
  5. MODERNA COVID-19 VACCINE [Concomitant]
     Active Substance: ELASOMERAN
     Indication: COVID-19
     Dosage: UNK, SECOND DOSE
     Dates: start: 20210412
  6. CORTICOSTEROID NOS [Concomitant]
     Active Substance: CORTICOSTEROID NOS
     Indication: Glomerulonephritis minimal lesion

REACTIONS (3)
  - Glomerulonephritis minimal lesion [Unknown]
  - Graft versus host disease [Unknown]
  - Off label use [Unknown]
